FAERS Safety Report 11782357 (Version 3)
Quarter: 2016Q1

REPORT INFORMATION
  Report Type: Spontaneous
  Country: JP (occurrence: JP)
  Receive Date: 20151127
  Receipt Date: 20160119
  Transmission Date: 20160525
  Serious: Yes (Hospitalization, Other)
  Sender: FDA-Public Use
  Company Number: JP-ORION CORPORATION ORION PHARMA-ENT 2015-1034

PATIENT
  Age: 70 Year
  Sex: Male

DRUGS (14)
  1. COMTAN [Suspect]
     Active Substance: ENTACAPONE
     Dosage: STRENGTH: 100 MG
     Route: 048
     Dates: start: 20140717
  2. EXCEGRAN [Concomitant]
     Active Substance: ZONISAMIDE
     Route: 065
  3. COMTAN [Suspect]
     Active Substance: ENTACAPONE
     Dosage: IN 3 DIVIDED DOSES
     Route: 048
  4. MIRAPEX [Suspect]
     Active Substance: PRAMIPEXOLE DIHYDROCHLORIDE
     Route: 048
  5. MIRAPEX [Suspect]
     Active Substance: PRAMIPEXOLE DIHYDROCHLORIDE
     Route: 048
  6. NEUPRO [Suspect]
     Active Substance: ROTIGOTINE
     Indication: PARKINSON^S DISEASE
     Route: 062
     Dates: start: 201410
  7. MADOPAR [Concomitant]
     Active Substance: BENSERAZIDE HYDROCHLORIDE\LEVODOPA
     Route: 065
  8. REQUIP [Concomitant]
     Active Substance: ROPINIROLE HYDROCHLORIDE
     Route: 065
  9. MIRAPEX [Suspect]
     Active Substance: PRAMIPEXOLE DIHYDROCHLORIDE
     Route: 048
  10. MADOPAR [Concomitant]
     Active Substance: BENSERAZIDE HYDROCHLORIDE\LEVODOPA
     Dosage: 0000, 0300, 0600, 0900, 1200, 1500, 1800 AND 2100 HOURS
     Route: 065
  11. MIRAPEX [Suspect]
     Active Substance: PRAMIPEXOLE DIHYDROCHLORIDE
     Indication: PARKINSON^S DISEASE
     Route: 048
     Dates: start: 201212
  12. NEUPRO [Suspect]
     Active Substance: ROTIGOTINE
     Route: 062
     Dates: start: 201410, end: 201505
  13. COMTAN [Suspect]
     Active Substance: ENTACAPONE
     Indication: PARKINSON^S DISEASE
     Route: 048
  14. MIRAPEX [Suspect]
     Active Substance: PRAMIPEXOLE DIHYDROCHLORIDE
     Route: 048

REACTIONS (3)
  - Oedema peripheral [Recovering/Resolving]
  - Dyskinesia [Unknown]
  - Hallucination, visual [Unknown]

NARRATIVE: CASE EVENT DATE: 201407
